FAERS Safety Report 10547915 (Version 2)
Quarter: 2014Q4

REPORT INFORMATION
  Report Type: Report from Study
  Country: DE (occurrence: DE)
  Receive Date: 20141028
  Receipt Date: 20141028
  Transmission Date: 20150529
  Serious: Yes (Hospitalization, Other)
  Sender: FDA-Public Use
  Company Number: DE-ROCHE-1466980

PATIENT
  Age: 72 Year
  Sex: Male
  Weight: 65 kg

DRUGS (3)
  1. BEVACIZUMAB [Suspect]
     Active Substance: BEVACIZUMAB
     Dosage: IN COMBINATION WITH IRINOTECAN (AIO SCHEMA)
     Route: 042
     Dates: start: 201112, end: 201201
  2. BEVACIZUMAB [Suspect]
     Active Substance: BEVACIZUMAB
     Indication: RECTAL CANCER
     Dosage: ON 16/SEP/2013, LAST DOSE PRIOR TO THE EVENT WAS GIVEN
     Route: 042
     Dates: start: 20130311, end: 201310
  3. CAPECITABINE. [Suspect]
     Active Substance: CAPECITABINE
     Indication: RECTAL CANCER
     Dosage: PAUSE OF ONE WEEK AFTER 14 DAYS OF DAILY INTAKE
     Route: 048
     Dates: start: 20130311, end: 201310

REACTIONS (3)
  - Transient ischaemic attack [Recovered/Resolved]
  - Hemiparesis [Recovered/Resolved]
  - Thrombocytopenia [Recovered/Resolved]

NARRATIVE: CASE EVENT DATE: 20130917
